FAERS Safety Report 8956550 (Version 1)
Quarter: 2012Q4

REPORT INFORMATION
  Report Type: 
  Country: US (occurrence: US)
  Receive Date: 20121210
  Receipt Date: 20121210
  Transmission Date: 20130627
  Serious: Yes (Other)
  Sender: FDA-Public Use
  Company Number: US-PFIZER INC-2012306525

PATIENT
  Age: 88 Year
  Sex: Female
  Weight: 63.49 kg

DRUGS (5)
  1. REVATIO [Suspect]
     Indication: PULMONARY HYPERTENSION
     Dosage: 30 mg, 3x/day
     Route: 048
     Dates: start: 201009
  2. REVATIO [Suspect]
     Dosage: 60 mg, 3x/day
     Route: 048
     Dates: start: 2011, end: 20121130
  3. TOPROL XL [Concomitant]
     Indication: HYPERTENSION
     Dosage: 100 mg, daily
  4. LOSARTAN [Concomitant]
     Indication: HYPERTENSION
     Dosage: 20 mg daily
  5. WARFARIN [Concomitant]
     Indication: ATRIAL FIBRILLATION
     Dosage: 2.5mg daily on Tuesday of every week and 5mg daily on remaining days of the week

REACTIONS (2)
  - Off label use [Recovered/Resolved]
  - Hypoacusis [Not Recovered/Not Resolved]
